FAERS Safety Report 6081462-3 (Version None)
Quarter: 2009Q1

REPORT INFORMATION
  Report Type: 
  Country: None (occurrence: None)
  Receive Date: 20090213
  Receipt Date: 20081017
  Transmission Date: 20090719
  Serious: Yes (Other)
  Sender: FDA-Public Use
  Company Number: US025299

PATIENT
  Age: 52 Year
  Sex: Male
  Weight: 90 kg

DRUGS (8)
  1. RIBOMUSTIN [Suspect]
     Indication: NON-HODGKIN'S LYMPHOMA
     Dosage: 180 MG QD INTRAVENOUS
     Route: 042
     Dates: start: 20080821
  2. RIBOMUSTIN [Suspect]
     Indication: NON-HODGKIN'S LYMPHOMA
     Dosage: 180 MG QD INTRAVENOUS
     Route: 042
     Dates: start: 20081113
  3. MABTHERA [Concomitant]
  4. DEXAMETHASONE [Concomitant]
  5. GRANISETRON [Concomitant]
  6. HEPARIN [Concomitant]
  7. RIBOMUSTIN [Suspect]
  8. BIBOMUSTIN [Suspect]

REACTIONS (1)
  - THROMBOPHLEBITIS [None]
